FAERS Safety Report 4951124-1 (Version None)
Quarter: 2006Q1

REPORT INFORMATION
  Report Type: 
  Country: None (occurrence: None)
  Receive Date: 20060322
  Receipt Date: 20050414
  Transmission Date: 20060701
  Serious: Yes (Hospitalization, Other)
  Sender: FDA-Public Use
  Company Number: US-MERCK-0504USA02914

PATIENT
  Age: 47 Year
  Sex: Male
  Weight: 75 kg

DRUGS (4)
  1. VIOXX [Suspect]
     Indication: ANALGESIC EFFECT
     Route: 048
     Dates: start: 20000301, end: 20000901
  2. ZIAGEN [Concomitant]
     Route: 065
  3. SUSTIVA [Concomitant]
     Route: 065
  4. SAQUINAVIR [Concomitant]
     Route: 065

REACTIONS (12)
  - CARDIAC FAILURE [None]
  - CEREBROVASCULAR ACCIDENT [None]
  - CHEST PAIN [None]
  - HEPATOCELLULAR DAMAGE [None]
  - KNEE ARTHROPLASTY [None]
  - MYOCARDIAL INFARCTION [None]
  - PNEUMONIA [None]
  - POLYTRAUMATISM [None]
  - PULMONARY EMBOLISM [None]
  - RENAL DISORDER [None]
  - THROMBOSIS [None]
  - ULCER [None]
